FAERS Safety Report 4473011-8 (Version None)
Quarter: 2004Q4

REPORT INFORMATION
  Report Type: 
  Country: None (occurrence: None)
  Receive Date: 20041013
  Receipt Date: 20041002
  Transmission Date: 20050328
  Serious: Yes (Other)
  Sender: FDA-Public Use
  Company Number: US-BRISTOL-MYERS SQUIBB COMPANY-12719910

PATIENT

DRUGS (1)
  1. MAXIPIME [Suspect]

REACTIONS (1)
  - NEPHRITIS INTERSTITIAL [None]
